FAERS Safety Report 7838838-0 (Version None)
Quarter: 2011Q4

REPORT INFORMATION
  Report Type: 
  Country: None (occurrence: None)
  Receive Date: 20111024
  Receipt Date: 20111016
  Transmission Date: 20120403
  Serious: Yes (Hospitalization)
  Sender: FDA-Public Use
  Company Number: US-US-EMD SERONO, INC.-7072398

PATIENT
  Sex: Female
  Weight: 61 kg

DRUGS (5)
  1. REBIF [Suspect]
     Indication: MULTIPLE SCLEROSIS
     Route: 058
     Dates: start: 20060101
  2. NEURONTIN [Concomitant]
     Indication: MULTIPLE SCLEROSIS
  3. UNSPECIFIED MEDICATIONS [Concomitant]
  4. BACLOFEN [Concomitant]
     Indication: MULTIPLE SCLEROSIS
  5. CORTICOSTEROID INHALER [Concomitant]
     Indication: CHRONIC OBSTRUCTIVE PULMONARY DISEASE
     Route: 055

REACTIONS (4)
  - LUNG INFECTION [None]
  - INJECTION SITE SWELLING [None]
  - MYOCARDIAL INFARCTION [None]
  - CORONARY ARTERY OCCLUSION [None]
